FAERS Safety Report 4698052-7 (Version None)
Quarter: 2005Q2

REPORT INFORMATION
  Report Type: 
  Country: None (occurrence: None)
  Receive Date: 20050621
  Receipt Date: 20050620
  Transmission Date: 20051028
  Serious: Yes (Hospitalization)
  Sender: FDA-Public Use
  Company Number: THQ2005A00514

PATIENT
  Sex: Male

DRUGS (6)
  1. LANSOPRAZOLE [Suspect]
     Dosage: TRANSPLACENTAL
     Route: 064
  2. EFFEXOR [Suspect]
     Dosage: (1 IN 1 D),TRANSPLACENTAL
     Route: 064
  3. TEMAZEPAM [Concomitant]
  4. MORPHINE [Concomitant]
  5. POTASSIUM CHLORIDE [Concomitant]
  6. CARAFATE [Concomitant]

REACTIONS (5)
  - CAESAREAN SECTION [None]
  - DRUG EXPOSURE DURING PREGNANCY [None]
  - DRUG WITHDRAWAL SYNDROME NEONATAL [None]
  - FEEDING PROBLEM IN NEWBORN [None]
  - POOR SUCKING REFLEX [None]
